FAERS Safety Report 7674460-7 (Version None)
Quarter: 2011Q3

REPORT INFORMATION
  Report Type: 
  Country: None (occurrence: None)
  Receive Date: 20110810
  Receipt Date: 20110801
  Transmission Date: 20111222
  Serious: Yes (Other)
  Sender: FDA-Public Use
  Company Number: US-ROCHE-651033

PATIENT
  Sex: Female
  Weight: 56.7 kg

DRUGS (7)
  1. XANAX [Concomitant]
  2. BIOTENE MOUTH RINSE [Concomitant]
  3. FEXOFENADINE [Concomitant]
  4. IBUPROFEN [Concomitant]
  5. BONIVA [Suspect]
     Indication: OSTEOPOROSIS
     Route: 065
     Dates: start: 20090101, end: 20090901
  6. LIPITOR [Concomitant]
  7. ZOLOFT [Concomitant]

REACTIONS (4)
  - JAW DISORDER [None]
  - BURNING SENSATION [None]
  - DRY MOUTH [None]
  - DYSGEUSIA [None]
